FAERS Safety Report 7130586-8 (Version None)
Quarter: 2010Q4

REPORT INFORMATION
  Report Type: 
  Country: None (occurrence: None)
  Receive Date: 20101201
  Receipt Date: 20101122
  Transmission Date: 20110411
  Serious: No
  Sender: FDA-Public Use
  Company Number: US-TEVA-256411USA

PATIENT
  Sex: Male

DRUGS (2)
  1. ALBUTEROL SULFATE AUTOHALER [Suspect]
     Dosage: Q4 HOURS PRN
     Route: 055
     Dates: start: 20101120, end: 20101122
  2. BETA BLOCKING AGENTS [Concomitant]

REACTIONS (2)
  - DRUG INEFFECTIVE [None]
  - SWELLING FACE [None]
